FAERS Safety Report 21417812 (Version 1)
Quarter: 2022Q4

REPORT INFORMATION
  Report Type: Spontaneous
  Country: DE (occurrence: DE)
  Receive Date: 20221006
  Receipt Date: 20221006
  Transmission Date: 20230113
  Serious: Yes (Life-Threatening, Hospitalization)
  Sender: FDA-Public Use
  Company Number: None

PATIENT
  Age: 51 Year
  Sex: Female
  Weight: 60 kg

DRUGS (12)
  1. MOVICOL [Concomitant]
     Active Substance: POLYETHYLENE GLYCOL 3350\POTASSIUM CHLORIDE\SODIUM BICARBONATE\SODIUM CHLORIDE
     Dosage: BEDARF, PULVER ()
     Route: 050
  2. ACETAMINOPHEN [Concomitant]
     Active Substance: ACETAMINOPHEN
     Dosage: 500 MG, 1-1-1-1, TABLETTEN ()
     Route: 050
  3. ESOMEPRAZOLE [Concomitant]
     Active Substance: ESOMEPRAZOLE
     Dosage: 40 MG, 1-0-1-0, KAPSELN ()
     Route: 050
  4. Rekawan retard 600mg [Concomitant]
     Dosage: 2-2-2-2, RETARD-KAPSELN ()
     Route: 050
  5. MIRTAZAPINE [Concomitant]
     Active Substance: MIRTAZAPINE
     Dosage: 15 MG, 0-0-0-0.5, TABLETTEN ()
     Route: 050
  6. Sab simplex Suspension zum Einnehmen [Concomitant]
     Dosage: 15-15-15-0, SUSPENSION ()
     Route: 050
  7. ASPIRIN [Concomitant]
     Active Substance: ASPIRIN
     Dosage: 100 MG, 1-0-0-0, TABLETTEN ()
     Route: 050
  8. NALOXONE HYDROCHLORIDE\TILIDINE HYDROCHLORIDE [Suspect]
     Active Substance: NALOXONE HYDROCHLORIDE\TILIDINE HYDROCHLORIDE
     Dosage: 4|50 MG, 2-0-2-0, RETARD-TABLETTEN ()
     Route: 050
  9. PIPERACILLIN SODIUM\TAZOBACTAM SODIUM [Suspect]
     Active Substance: PIPERACILLIN SODIUM\TAZOBACTAM SODIUM
     Dosage: NK ()
     Route: 050
  10. METOCLOPRAMIDE [Concomitant]
     Active Substance: METOCLOPRAMIDE
     Dosage: 10 MG, 1-1-1-0, TABLETTEN ()
     Route: 050
  11. RIOPAN MAGEN GEL [Concomitant]
     Dosage: 1-1-1-1, SUSPENSION ()
     Route: 050
  12. Fresubin 2kcal fibre DRINK Schokolade [Concomitant]
     Dosage: 1-1-1-0 ()
     Route: 050

REACTIONS (3)
  - Disturbance in attention [Unknown]
  - Sepsis [Unknown]
  - Depressed level of consciousness [Unknown]

NARRATIVE: CASE EVENT DATE: 20210319
